FAERS Safety Report 12739932 (Version 4)
Quarter: 2017Q3

REPORT INFORMATION
  Report Type: Report from Study
  Country: JP (occurrence: JP)
  Receive Date: 20160913
  Receipt Date: 20170825
  Transmission Date: 20171127
  Serious: Yes (Disabling)
  Sender: FDA-Public Use
  Company Number: JP-ASTELLAS-2016JP015141

PATIENT
  Age: 66 Year
  Sex: Male
  Weight: 51 kg

DRUGS (3)
  1. ENZALUTAMIDE [Suspect]
     Active Substance: ENZALUTAMIDE
     Indication: HORMONE-REFRACTORY PROSTATE CANCER
     Route: 048
     Dates: start: 20150721, end: 20150817
  2. LEUPRORELIN ACETATE [Concomitant]
     Active Substance: LEUPROLIDE ACETATE
     Indication: HORMONE-REFRACTORY PROSTATE CANCER
     Route: 065
  3. ENZALUTAMIDE [Suspect]
     Active Substance: ENZALUTAMIDE
     Route: 048
     Dates: start: 20150818, end: 20150821

REACTIONS (4)
  - Monoplegia [Unknown]
  - Intentional underdose [Unknown]
  - Bladder disorder [Unknown]
  - Anorectal disorder [Unknown]

NARRATIVE: CASE EVENT DATE: 20150721
